FAERS Safety Report 12555610 (Version 4)
Quarter: 2016Q4

REPORT INFORMATION
  Report Type: Spontaneous
  Country: GR (occurrence: GR)
  Receive Date: 20160714
  Receipt Date: 20161103
  Transmission Date: 20170207
  Serious: Yes (Death, Hospitalization, Other)
  Sender: FDA-Public Use
  Company Number: PHHY2016GR095940

PATIENT
  Age: 59 Year
  Sex: Male

DRUGS (4)
  1. ARZERRA [Suspect]
     Active Substance: OFATUMUMAB
     Dosage: 1000 MG, UNK
     Route: 042
     Dates: start: 20160518
  2. ZOVIRAX [Concomitant]
     Active Substance: ACYCLOVIR
     Indication: PRODUCT USED FOR UNKNOWN INDICATION
     Dosage: 800 MG/H, UNK
     Route: 065
  3. ZYLAPOUR [Concomitant]
     Indication: PRODUCT USED FOR UNKNOWN INDICATION
     Dosage: 300 MG, UNK
     Route: 065
  4. ARZERRA [Suspect]
     Active Substance: OFATUMUMAB
     Indication: CHRONIC LYMPHOCYTIC LEUKAEMIA
     Dosage: 300 MG, UNK
     Route: 042
     Dates: start: 20160511

REACTIONS (22)
  - Hypoalbuminaemia [Fatal]
  - Shock haemorrhagic [Fatal]
  - General physical health deterioration [Fatal]
  - Septic shock [Fatal]
  - Renal impairment [Fatal]
  - Retroperitoneal lymphadenopathy [Fatal]
  - Immunosuppression [Fatal]
  - Generalised oedema [Unknown]
  - Hepatic cirrhosis [Fatal]
  - Chronic lymphocytic leukaemia [Fatal]
  - Pancytopenia [Unknown]
  - Ascites [Fatal]
  - Oedema [Fatal]
  - Serratia infection [Fatal]
  - Haematemesis [Fatal]
  - Varices oesophageal [Fatal]
  - Hypofibrinogenaemia [Fatal]
  - Coagulopathy [Fatal]
  - Liver disorder [Fatal]
  - Neutropenia [Fatal]
  - Hepatic failure [Unknown]
  - Hepatosplenomegaly [Fatal]

NARRATIVE: CASE EVENT DATE: 20160705
